FAERS Safety Report 21925275 (Version 1)
Quarter: 2023Q1

REPORT INFORMATION
  Report Type: Spontaneous
  Country: PR (occurrence: None)
  Receive Date: 20230127
  Receipt Date: 20230127
  Transmission Date: 20230417
  Serious: Yes (Other)
  Sender: FDA-Public Use
  Company Number: None

PATIENT
  Age: 48 Year
  Sex: Male
  Weight: 105.75 kg

DRUGS (5)
  1. PAXLOVID [Suspect]
     Active Substance: NIRMATRELVIR\RITONAVIR
     Indication: COVID-19
     Dosage: FREQUENCY : TWICE A DAY;?
     Route: 048
     Dates: start: 20230117, end: 20230121
  2. Metformin 500 mg daily [Concomitant]
  3. Toprol 100 mg daily [Concomitant]
  4. LOSARTAN [Concomitant]
     Active Substance: LOSARTAN
  5. HCT 12.5 mg daily [Concomitant]

REACTIONS (7)
  - SARS-CoV-2 test negative [None]
  - SARS-CoV-2 test positive [None]
  - Nasal congestion [None]
  - Chest discomfort [None]
  - Fatigue [None]
  - COVID-19 [None]
  - Symptom recurrence [None]

NARRATIVE: CASE EVENT DATE: 20230126
